FAERS Safety Report 13359004 (Version 2)
Quarter: 2017Q2

REPORT INFORMATION
  Report Type: Other
  Country: FR (occurrence: FR)
  Receive Date: 20170322
  Receipt Date: 20170417
  Transmission Date: 20170830
  Serious: Yes (Other)
  Sender: FDA-Public Use
  Company Number: FR-CELLTRION INC.-2017FR003464

PATIENT

DRUGS (1)
  1. INFLECTRA [Suspect]
     Active Substance: INFLIXIMAB-DYYB
     Indication: ANKYLOSING SPONDYLITIS
     Dosage: 5 MG/KG, EVERY 8 WEEKS
     Route: 041
     Dates: start: 20161122, end: 20170117

REACTIONS (3)
  - Immunisation [Recovering/Resolving]
  - Flushing [Recovering/Resolving]
  - Larynx irritation [Recovering/Resolving]

NARRATIVE: CASE EVENT DATE: 20170117
